FAERS Safety Report 15328541 (Version 7)
Quarter: 2025Q3

REPORT INFORMATION
  Report Type: Report from Study
  Country: US (occurrence: US)
  Receive Date: 20180829
  Receipt Date: 20250730
  Transmission Date: 20251021
  Serious: Yes (Life-Threatening, Hospitalization, Other)
  Sender: TAKEDA
  Company Number: US-SHIRE-US201833282

PATIENT
  Age: 36 Year
  Sex: Female

DRUGS (2)
  1. VELAGLUCERASE ALFA [Suspect]
     Active Substance: VELAGLUCERASE ALFA
     Indication: Gaucher^s disease
     Dosage: 12 DOSAGE FORM, 2/MONTH
     Dates: start: 20150312
  2. VELAGLUCERASE ALFA [Suspect]
     Active Substance: VELAGLUCERASE ALFA
     Dosage: UNK, 2/MONTH

REACTIONS (12)
  - Cerebrovascular accident [Unknown]
  - Blood iron decreased [Recovering/Resolving]
  - Haemoglobin decreased [Recovering/Resolving]
  - Migraine [Recovering/Resolving]
  - Blood pressure decreased [Recovering/Resolving]
  - Brain fog [Unknown]
  - Memory impairment [Unknown]
  - Illness [Unknown]
  - Insurance issue [Unknown]
  - Product dose omission issue [Unknown]
  - Inability to afford medication [Unknown]
  - Rash [Recovering/Resolving]

NARRATIVE: CASE EVENT DATE: 20180823
